FAERS Safety Report 17963793 (Version 1)
Quarter: 2020Q2

REPORT INFORMATION
  Report Type: Spontaneous
  Country: TR (occurrence: TR)
  Receive Date: 20200630
  Receipt Date: 20200630
  Transmission Date: 20200714
  Serious: Yes (Other)
  Sender: FDA-Public Use
  Company Number: TR-PFIZER INC-2020249462

PATIENT
  Age: 26 Year
  Sex: Male

DRUGS (1)
  1. LUSTRAL [Suspect]
     Active Substance: SERTRALINE HYDROCHLORIDE
     Dosage: 25 MG

REACTIONS (3)
  - Abdominal discomfort [Unknown]
  - Weight decreased [Unknown]
  - Diarrhoea [Unknown]
